FAERS Safety Report 23426425 (Version 2)
Quarter: 2024Q1

REPORT INFORMATION
  Report Type: Report from Study
  Country: CA (occurrence: CA)
  Receive Date: 20240122
  Receipt Date: 20240207
  Transmission Date: 20240409
  Serious: Yes (Other)
  Sender: FDA-Public Use
  Company Number: CA-TAKEDA-2024TUS005653

PATIENT
  Sex: Female

DRUGS (4)
  1. VEDOLIZUMAB [Suspect]
     Active Substance: VEDOLIZUMAB
     Indication: Crohn^s disease
     Dosage: 300 MILLIGRAM
     Route: 042
     Dates: start: 20150716
  2. DAPSONE [Concomitant]
     Active Substance: DAPSONE
     Indication: Rash
     Dosage: UNK UNK, QD
  3. CHLORTHALIDONE [Concomitant]
     Active Substance: CHLORTHALIDONE
     Dosage: UNK
     Dates: start: 20200628
  4. FERRITIN [Concomitant]
     Active Substance: FERRITIN
     Dosage: UNK
     Dates: start: 20230516

REACTIONS (2)
  - Plasma cell myeloma [Unknown]
  - Ingrowing nail [Unknown]
